FAERS Safety Report 8461447-X (Version None)
Quarter: 2012Q2

REPORT INFORMATION
  Report Type: 
  Country: None (occurrence: None)
  Receive Date: 20120323
  Receipt Date: 20110922
  Transmission Date: 20120825
  Serious: Yes (Hospitalization)
  Sender: FDA-Public Use
  Company Number: 163-21880-11092992

PATIENT
  Age: 84 Year
  Sex: Male

DRUGS (7)
  1. DEXAMETHASONE [Concomitant]
  2. REVLIMID [Suspect]
     Indication: MULTIPLE MYELOMA
     Dosage: SEE IMAGE: ORAL
     Route: 048
     Dates: start: 20091001
  3. REVLIMID [Suspect]
     Indication: MULTIPLE MYELOMA
     Dosage: SEE IMAGE: ORAL
     Route: 048
     Dates: start: 20110501
  4. REVLIMID [Suspect]
     Indication: MULTIPLE MYELOMA
     Dosage: SEE IMAGE: ORAL
     Route: 048
     Dates: start: 20100201
  5. REVLIMID [Suspect]
     Indication: MULTIPLE MYELOMA
     Dosage: SEE IMAGE: ORAL
     Route: 048
     Dates: start: 20110201
  6. REVLIMID [Suspect]
     Indication: MULTIPLE MYELOMA
     Dosage: SEE IMAGE: ORAL
     Route: 048
     Dates: start: 20100401
  7. REVLIMID [Suspect]
     Indication: MULTIPLE MYELOMA
     Dosage: SEE IMAGE: ORAL
     Route: 048
     Dates: start: 20101201

REACTIONS (1)
  - FULL BLOOD COUNT DECREASED [None]
